FAERS Safety Report 14549435 (Version 1)
Quarter: 2018Q1

REPORT INFORMATION
  Report Type: Spontaneous
  Country: BR (occurrence: BR)
  Receive Date: 20180219
  Receipt Date: 20180219
  Transmission Date: 20180509
  Serious: Yes (Other)
  Sender: FDA-Public Use
  Company Number: BR-TORRENT-00004285

PATIENT
  Age: 53 Year
  Sex: Female
  Weight: 73 kg

DRUGS (3)
  1. ESPRAN [Suspect]
     Active Substance: ESCITALOPRAM OXALATE
     Indication: DEPRESSION
     Dosage: ONE TABLET DAILY IN THE MORNING
     Route: 048
     Dates: start: 201111
  2. RIVOTRIL [Concomitant]
     Active Substance: CLONAZEPAM
     Indication: SEDATIVE THERAPY
     Dosage: 1 TAB (MORNING) 1 TAB (NIGHT)
     Route: 048
     Dates: start: 2003
  3. NEULEPTIL [Concomitant]
     Active Substance: PERICIAZINE
     Indication: DEPRESSION
     Dosage: 1 TAB AT NIGHT
     Route: 048
     Dates: start: 2003

REACTIONS (2)
  - Surgery [Unknown]
  - Urinary incontinence [Not Recovered/Not Resolved]

NARRATIVE: CASE EVENT DATE: 2013
